FAERS Safety Report 26210132 (Version 1)
Quarter: 2025Q4

REPORT INFORMATION
  Report Type: Spontaneous
  Country: CN (occurrence: CN)
  Receive Date: 20251229
  Receipt Date: 20251229
  Transmission Date: 20260117
  Serious: Yes (Other)
  Sender: B. BRAUN MEDICAL INC.
  Company Number: CN-B. Braun Medical Inc.-CN-BBM-202504986

PATIENT
  Age: 27 Year
  Sex: Female

DRUGS (3)
  1. CEFUROXIME [Suspect]
     Active Substance: CEFUROXIME
     Indication: Intraocular lens implant
     Dosage: A STANDARD DOSE OF 1.0 MG / 0.1 ML OF INTRACAMERAL CEFUROXIME WAS ADMINISTERED INTO THE ANTERIOR CHAMBER.
  2. PREDNISOLONE [Concomitant]
     Active Substance: PREDNISOLONE
     Indication: Intraocular lens implant
  3. LEVOFLOXACIN [Concomitant]
     Active Substance: LEVOFLOXACIN
     Indication: Intraocular lens implant

REACTIONS (3)
  - Macular detachment [Recovered/Resolved]
  - Retinal oedema [Recovered/Resolved]
  - Off label use [Recovered/Resolved]
